FAERS Safety Report 4317839-3 (Version None)
Quarter: 2004Q1

REPORT INFORMATION
  Report Type: 
  Country: None (occurrence: None)
  Receive Date: 20040316
  Receipt Date: 20040309
  Transmission Date: 20041129
  Serious: Yes (Hospitalization)
  Sender: FDA-Public Use
  Company Number: 200413035GDDC

PATIENT
  Age: 76 Year
  Sex: Female
  Weight: 50 kg

DRUGS (4)
  1. NATRILIX - SLOW RELEASE [Suspect]
     Indication: ESSENTIAL HYPERTENSION
     Route: 048
     Dates: start: 20030916, end: 20031028
  2. PRAVACHOL [Concomitant]
  3. ZANIDIP [Concomitant]
  4. AVANZA [Concomitant]

REACTIONS (3)
  - CIRCULATORY COLLAPSE [None]
  - CONFUSIONAL STATE [None]
  - HYPONATRAEMIA [None]
